FAERS Safety Report 7582972-X (Version None)
Quarter: 2011Q2

REPORT INFORMATION
  Report Type: 
  Country: None (occurrence: None)
  Receive Date: 20110630
  Receipt Date: 20100824
  Transmission Date: 20111010
  Serious: No
  Sender: FDA-Public Use
  Company Number: SE-PFIZER INC-2010095226

PATIENT
  Age: 67 Year
  Sex: Female

DRUGS (1)
  1. ATARAX [Suspect]
     Dosage: UNK
     Route: 048

REACTIONS (1)
  - LIP SWELLING [None]
